FAERS Safety Report 5311145-6 (Version None)
Quarter: 2007Q2

REPORT INFORMATION
  Report Type: 
  Country: None (occurrence: None)
  Receive Date: 20070430
  Receipt Date: 20070423
  Transmission Date: 20071010
  Serious: Yes (Death)
  Sender: FDA-Public Use
  Company Number: US-ELI_LILLY_AND_COMPANY-US200704005210

PATIENT
  Sex: Female

DRUGS (2)
  1. ZYPREXA [Suspect]
     Indication: DEPRESSION
     Dosage: UNK, UNK
     Dates: start: 19980401, end: 20040601
  2. SEROQUEL [Concomitant]
     Dates: start: 20040601

REACTIONS (3)
  - DEATH [None]
  - DYSTONIA [None]
  - TARDIVE DYSKINESIA [None]
